FAERS Safety Report 7640944-0 (Version None)
Quarter: 2011Q3

REPORT INFORMATION
  Report Type: 
  Country: None (occurrence: None)
  Receive Date: 20110728
  Receipt Date: 20110718
  Transmission Date: 20111222
  Serious: Yes (Hospitalization)
  Sender: FDA-Public Use
  Company Number: FR-JNJFOC-20110610916

PATIENT
  Sex: Male
  Weight: 60 kg

DRUGS (8)
  1. TRUVADA [Suspect]
     Route: 048
     Dates: start: 20110405, end: 20110606
  2. NORVIR [Suspect]
     Indication: HIV INFECTION
     Route: 048
     Dates: start: 20110314, end: 20110330
  3. COTRIM [Concomitant]
     Indication: OPPORTUNISTIC INFECTION PROPHYLAXIS
     Route: 048
     Dates: start: 20110118
  4. TMC114 [Suspect]
     Route: 048
     Dates: start: 20110314, end: 20110330
  5. DAFALGAN CODEINE [Concomitant]
     Indication: PAIN
     Route: 048
     Dates: start: 20110419
  6. TRUVADA [Suspect]
     Indication: HIV INFECTION
     Route: 048
     Dates: start: 20110314, end: 20110330
  7. TMC114 [Suspect]
     Indication: HIV INFECTION
     Route: 048
     Dates: start: 20110405, end: 20110606
  8. NORVIR [Suspect]
     Route: 048
     Dates: start: 20110405, end: 20110606

REACTIONS (1)
  - GAMMA-GLUTAMYLTRANSFERASE INCREASED [None]
